FAERS Safety Report 17321041 (Version 1)
Quarter: 2020Q1

REPORT INFORMATION
  Report Type: Other
  Country: US (occurrence: US)
  Receive Date: 20200126
  Receipt Date: 20200126
  Transmission Date: 20200409
  Serious: Yes (Other)
  Sender: FDA-Public Use
  Company Number: US-ACORDA-ACO_157865_2019

PATIENT
  Sex: Male

DRUGS (1)
  1. AMPYRA [Suspect]
     Active Substance: DALFAMPRIDINE
     Indication: PRODUCT USED FOR UNKNOWN INDICATION
     Dosage: 10 MILLIGRAM, BID
     Route: 048
     Dates: end: 20190403

REACTIONS (14)
  - Gait disturbance [Unknown]
  - Pain [Unknown]
  - Muscular weakness [Unknown]
  - Mobility decreased [Recovering/Resolving]
  - Productive cough [Unknown]
  - Exophthalmos [Recovered/Resolved]
  - Pulmonary congestion [Unknown]
  - Condition aggravated [Recovering/Resolving]
  - Dyspnoea [Unknown]
  - Headache [Recovering/Resolving]
  - Hypoaesthesia [Recovering/Resolving]
  - Balance disorder [Unknown]
  - Haematemesis [Recovering/Resolving]
  - Muscle spasms [Recovering/Resolving]
